FAERS Safety Report 6568472-4 (Version None)
Quarter: 2010Q1

REPORT INFORMATION
  Report Type: 
  Country: None (occurrence: None)
  Receive Date: 20100203
  Receipt Date: 20100127
  Transmission Date: 20100710
  Serious: Yes (Other)
  Sender: FDA-Public Use
  Company Number: B0406828A

PATIENT
  Sex: Male

DRUGS (4)
  1. REQUIP [Suspect]
     Indication: PARKINSON'S DISEASE
     Route: 048
     Dates: start: 20051219, end: 20060101
  2. LISINOPRIL [Concomitant]
  3. WARFARIN SODIUM [Concomitant]
  4. LEVODOPA [Concomitant]

REACTIONS (6)
  - DIZZINESS [None]
  - MOBILITY DECREASED [None]
  - PARKINSON'S DISEASE [None]
  - PAROSMIA [None]
  - RASH [None]
  - RASH PRURITIC [None]
